FAERS Safety Report 8581396-6 (Version None)
Quarter: 2012Q3

REPORT INFORMATION
  Report Type: 
  Country: None (occurrence: None)
  Receive Date: 20120809
  Receipt Date: 20120801
  Transmission Date: 20120928
  Serious: Yes (Other)
  Sender: FDA-Public Use
  Company Number: US-US-EMD SERONO, INC.-7133657

PATIENT
  Sex: Male

DRUGS (7)
  1. REBIF [Suspect]
     Route: 058
  2. NORVASC [Concomitant]
     Indication: HYPERTENSION
  3. ZYPREXA [Concomitant]
     Indication: PRODUCT USED FOR UNKNOWN INDICATION
  4. ZOLOFT [Concomitant]
     Indication: PRODUCT USED FOR UNKNOWN INDICATION
  5. REBIF [Suspect]
     Indication: MULTIPLE SCLEROSIS
     Route: 058
     Dates: start: 20110512, end: 20120601
  6. SIMVASTATIN [Concomitant]
     Indication: BLOOD CHOLESTEROL INCREASED
  7. DIOVAN [Concomitant]
     Indication: HYPERTENSION

REACTIONS (8)
  - MELANOMA RECURRENT [None]
  - METASTASES TO CENTRAL NERVOUS SYSTEM [None]
  - INSOMNIA [None]
  - FEELING ABNORMAL [None]
  - INFLUENZA LIKE ILLNESS [None]
  - METASTASES TO SPINE [None]
  - METASTASES TO SPLEEN [None]
  - FORMICATION [None]
